FAERS Safety Report 9250678 (Version 1)
Quarter: 2013Q1

REPORT INFORMATION
  Report Type: Spontaneous
  Country: US (occurrence: None)
  Receive Date: 20130305
  Receipt Date: 20130305
  Transmission Date: 20140127
  Serious: Yes (Hospitalization)
  Sender: FDA-Public Use
  Company Number: 163-21880-12062984

PATIENT
  Age: 85 Year
  Sex: Female

DRUGS (2)
  1. REVLIMID [Suspect]
     Indication: PLASMA CELL MYELOMA
     Dosage: 25 MG, 21 IN 28 D, PO
     Route: 048
     Dates: start: 20120516
  2. DEXAMETHASONE (DEXAMETHASONE) [Suspect]
     Dosage: 5.7143 MG, 1 IN 1 WK, UNK
     Dates: start: 20120524

REACTIONS (4)
  - Dehydration [None]
  - Renal impairment [None]
  - Discomfort [None]
  - Nausea [None]
